FAERS Safety Report 22875579 (Version 4)
Quarter: 2023Q4

REPORT INFORMATION
  Report Type: Report from Study
  Country: US (occurrence: US)
  Receive Date: 20230829
  Receipt Date: 20231227
  Transmission Date: 20240109
  Serious: Yes (Hospitalization, Other)
  Sender: FDA-Public Use
  Company Number: US-ABBVIE-5383208

PATIENT
  Sex: Female

DRUGS (2)
  1. RINVOQ [Suspect]
     Active Substance: UPADACITINIB
     Indication: Rheumatoid arthritis
     Dosage: STOP DATE TEXT: 2023
     Route: 048
     Dates: start: 20220622
  2. RINVOQ [Suspect]
     Active Substance: UPADACITINIB
     Indication: Rheumatoid arthritis
     Route: 048
     Dates: start: 20231102

REACTIONS (7)
  - Medical procedure [Unknown]
  - Joint stiffness [Unknown]
  - Swelling [Recovering/Resolving]
  - Knee arthroplasty [Recovering/Resolving]
  - Blister [Recovering/Resolving]
  - Skin disorder [Recovered/Resolved]
  - Knee operation [Unknown]

NARRATIVE: CASE EVENT DATE: 20230101
